FAERS Safety Report 9002751 (Version 1)
Quarter: 2013Q1

REPORT INFORMATION
  Report Type: Spontaneous
  Country: US (occurrence: US)
  Receive Date: 20130107
  Receipt Date: 20130107
  Transmission Date: 20140127
  Serious: No
  Sender: FDA-Public Use
  Company Number: US-GLAXOSMITHKLINE-A0998581A

PATIENT
  Age: 44 Year
  Sex: Female
  Weight: 56.8 kg

DRUGS (1)
  1. BENLYSTA [Suspect]
     Route: 065

REACTIONS (7)
  - Pruritus [Recovered/Resolved]
  - Ill-defined disorder [Recovered/Resolved]
  - Accidental exposure to product [Recovered/Resolved]
  - Urticaria [Unknown]
  - Bronchospasm [Unknown]
  - Cough [Unknown]
  - Dyspnoea [Unknown]
